FAERS Safety Report 9991452 (Version 1)
Quarter: 2014Q1

REPORT INFORMATION
  Report Type: Report from Study
  Country: US (occurrence: US)
  Receive Date: 20140310
  Receipt Date: 20140310
  Transmission Date: 20141002
  Serious: No
  Sender: FDA-Public Use
  Company Number: US-ABBVIE-13P-163-1135837-00

PATIENT
  Age: 52 Year
  Sex: Female

DRUGS (10)
  1. HUMIRA [Suspect]
     Indication: CROHN^S DISEASE
     Dates: start: 20130813, end: 20130813
  2. HUMIRA [Suspect]
  3. GABAPENTIN [Concomitant]
     Indication: NECK PAIN
  4. GABAPENTIN [Concomitant]
     Indication: INSOMNIA
  5. GABAPENTIN [Concomitant]
     Indication: MUSCULOSKELETAL PAIN
  6. VENLAFAXINE [Concomitant]
     Indication: HOT FLUSH
  7. VENLAFAXINE [Concomitant]
     Indication: MOOD SWINGS
  8. VENLAFAXINE [Concomitant]
     Indication: MENOPAUSE
  9. PROBIOTICS [Concomitant]
     Indication: PRODUCT USED FOR UNKNOWN INDICATION
  10. GLUCOSAMINE [Concomitant]
     Indication: PRODUCT USED FOR UNKNOWN INDICATION

REACTIONS (2)
  - Nasal dryness [Not Recovered/Not Resolved]
  - Epistaxis [Not Recovered/Not Resolved]
